FAERS Safety Report 17149687 (Version 2)
Quarter: 2020Q1

REPORT INFORMATION
  Report Type: Report from Study
  Country: US (occurrence: US)
  Receive Date: 20191213
  Receipt Date: 20200109
  Transmission Date: 20200409
  Serious: Yes (Hospitalization, Other)
  Sender: FDA-Public Use
  Company Number: US-CLOVIS ONCOLOGY-CLO-2019-002045

PATIENT
  Age: 66 Year
  Sex: Female

DRUGS (5)
  1. RUBRACA [Suspect]
     Active Substance: RUCAPARIB CAMSYLATE
     Dosage: 200 MG, BID
     Route: 048
     Dates: start: 20190920
  2. RUBRACA [Suspect]
     Active Substance: RUCAPARIB CAMSYLATE
     Dosage: 400 MG, BID
     Route: 048
     Dates: start: 20190920
  3. RUBRACA [Suspect]
     Active Substance: RUCAPARIB CAMSYLATE
     Indication: OVARIAN CANCER
     Dosage: 200 MG, BID
     Route: 048
     Dates: start: 201909, end: 2019
  4. RUBRACA [Suspect]
     Active Substance: RUCAPARIB CAMSYLATE
     Dosage: 100 MG, BID
     Route: 048
     Dates: start: 2019
  5. RUBRACA [Suspect]
     Active Substance: RUCAPARIB CAMSYLATE
     Dosage: 200 MG, BID
     Route: 048
     Dates: start: 201909, end: 2019

REACTIONS (7)
  - Renal pain [Unknown]
  - Pleural effusion [Not Recovered/Not Resolved]
  - Gallbladder enlargement [Unknown]
  - Peripheral swelling [Recovering/Resolving]
  - Pleural thickening [Unknown]
  - Spleen disorder [Unknown]
  - Renal cyst [Unknown]

NARRATIVE: CASE EVENT DATE: 201909
